FAERS Safety Report 6710650-5 (Version None)
Quarter: 2010Q2

REPORT INFORMATION
  Report Type: 
  Country: None (occurrence: None)
  Receive Date: 20100504
  Receipt Date: 20100504
  Transmission Date: 20101027
  Serious: Yes (Death)
  Sender: FDA-Public Use
  Company Number: None

PATIENT
  Age: 61 Year
  Sex: Female
  Weight: 58.9676 kg

DRUGS (3)
  1. CARBOPLATIN [Suspect]
     Indication: UTERINE CANCER
     Dates: start: 20061001, end: 20061101
  2. TAXOL [Suspect]
     Indication: UTERINE CANCER
     Dates: start: 20061001, end: 20061101
  3. ADRIAMYCIN PFS [Suspect]
     Indication: UTERINE CANCER
     Dates: start: 20061001, end: 20061101

REACTIONS (1)
  - DEATH [None]
